FAERS Safety Report 17434549 (Version 4)
Quarter: 2020Q3

REPORT INFORMATION
  Report Type: Spontaneous
  Country: IN (occurrence: IN)
  Receive Date: 20200219
  Receipt Date: 20200916
  Transmission Date: 20201102
  Serious: Yes (Other)
  Sender: FDA-Public Use
  Company Number: IN-PFIZER INC-2020021101

PATIENT
  Age: 74 Year
  Sex: Female
  Weight: 84.2 kg

DRUGS (3)
  1. LETROZOL [Concomitant]
     Active Substance: LETROZOLE
     Indication: BREAST CANCER METASTATIC
     Dosage: 2.5 MG, 1X/DAY
  2. SHELCAL [Concomitant]
     Active Substance: CALCIUM CARBONATE\CHOLECALCIFEROL
     Dosage: 1 DF, DAILY
  3. PALBACE [Suspect]
     Active Substance: PALBOCICLIB
     Indication: BREAST CANCER METASTATIC
     Dosage: 125 MG, CYCLIC (1X/DAY FOR 21 DAYS, THEN GAP OF 7 DAYS)
     Route: 048
     Dates: start: 20190425

REACTIONS (11)
  - Red cell distribution width increased [Unknown]
  - Haematocrit decreased [Unknown]
  - Neutrophil count decreased [Unknown]
  - Neoplasm progression [Unknown]
  - Red blood cell count decreased [Unknown]
  - White blood cell count decreased [Unknown]
  - Neutrophil percentage decreased [Unknown]
  - Blood pressure increased [Unknown]
  - Monocyte percentage increased [Unknown]
  - Mean cell volume increased [Unknown]
  - Mean cell haemoglobin increased [Unknown]

NARRATIVE: CASE EVENT DATE: 20200106
